FAERS Safety Report 5140282-4 (Version None)
Quarter: 2006Q4

REPORT INFORMATION
  Report Type: 
  Country: None (occurrence: None)
  Receive Date: 20061031
  Receipt Date: 20061027
  Transmission Date: 20070319
  Serious: Yes (Hospitalization)
  Sender: FDA-Public Use
  Company Number: CA-GLAXOSMITHKLINE-A0625263A

PATIENT
  Sex: Female

DRUGS (1)
  1. AVANDIA [Suspect]
     Dosage: 8MG PER DAY

REACTIONS (3)
  - HEPATIC FUNCTION ABNORMAL [None]
  - HEPATOTOXICITY [None]
  - THYROID DISORDER [None]
